FAERS Safety Report 4768567-1 (Version None)
Quarter: 2005Q3

REPORT INFORMATION
  Report Type: 
  Country: None (occurrence: None)
  Receive Date: 20050914
  Receipt Date: 20050907
  Transmission Date: 20060218
  Serious: Yes (Death, Hospitalization)
  Sender: FDA-Public Use
  Company Number: US-JNJFOC-20050901911

PATIENT
  Age: 29 Year
  Sex: Female

DRUGS (11)
  1. ACETAMINOPHEN [Suspect]
     Route: 048
  2. ACETAMINOPHEN [Suspect]
     Indication: SUICIDE ATTEMPT
     Route: 048
  3. RIFAMPIN [Concomitant]
  4. INH [Concomitant]
  5. PAROXETINE [Concomitant]
  6. PYRIDOXINE HCL [Concomitant]
  7. RISPERIDONE [Concomitant]
  8. RISPERIDONE [Concomitant]
  9. RISPERIDONE [Concomitant]
  10. RISPERIDONE [Concomitant]
  11. LANSOPRAZOLE [Concomitant]

REACTIONS (8)
  - COMPLETED SUICIDE [None]
  - ENCEPHALOPATHY [None]
  - HEART RATE INCREASED [None]
  - HEPATIC FUNCTION ABNORMAL [None]
  - INTENTIONAL MISUSE [None]
  - OVERDOSE [None]
  - RENAL IMPAIRMENT [None]
  - VOMITING [None]
